FAERS Safety Report 9729944 (Version 4)
Quarter: 2016Q4

REPORT INFORMATION
  Report Type: Spontaneous
  Country: US (occurrence: US)
  Receive Date: 20131204
  Receipt Date: 20161122
  Transmission Date: 20170207
  Serious: Yes (Hospitalization, Disabling, Other)
  Sender: FDA-Public Use
  Company Number: US-009507513-1312USA001408

PATIENT
  Sex: Female
  Weight: 72.11 kg

DRUGS (4)
  1. FOSAMAX [Suspect]
     Active Substance: ALENDRONATE SODIUM
     Indication: OSTEOPOROSIS
     Dosage: 70 MG, QW
     Route: 048
     Dates: start: 20070116, end: 200803
  2. CALCIUM (UNSPECIFIED) (+) VITAMIN D (UNSPECIFIED) [Concomitant]
     Active Substance: CALCIUM CARBONATE\VITAMIN D
     Dosage: UNK
     Route: 048
     Dates: start: 1985
  3. VITAMINS (UNSPECIFIED) [Concomitant]
     Active Substance: VITAMINS
     Dosage: UNK
     Route: 048
     Dates: start: 1985
  4. ALENDRONATE SODIUM. [Suspect]
     Active Substance: ALENDRONATE SODIUM
     Indication: OSTEOPOROSIS
     Dosage: 70 MG, QW
     Route: 048
     Dates: start: 200803, end: 201209

REACTIONS (45)
  - Deafness neurosensory [Unknown]
  - Fasciotomy [Unknown]
  - Fasciotomy [Unknown]
  - Biliary sphincterotomy [Unknown]
  - Pruritus [Unknown]
  - Low turnover osteopathy [Unknown]
  - Wrist fracture [Unknown]
  - Somnolence [Unknown]
  - Urinary tract infection [Unknown]
  - Lumbar spinal stenosis [Unknown]
  - Restless legs syndrome [Unknown]
  - Diarrhoea [Unknown]
  - Panic attack [Unknown]
  - Fracture [Unknown]
  - Femur fracture [Unknown]
  - Device failure [Unknown]
  - Ankle fracture [Unknown]
  - Irritable bowel syndrome [Unknown]
  - Colitis microscopic [Unknown]
  - Melanocytic naevus [Unknown]
  - Decreased vibratory sense [Unknown]
  - Hip arthroplasty [Unknown]
  - Wrist fracture [Unknown]
  - Sleep disorder [Unknown]
  - Basedow^s disease [Unknown]
  - Femur fracture [Unknown]
  - Cholecystectomy [Unknown]
  - Steroid therapy [Unknown]
  - Arthroscopy [Unknown]
  - Depression [Not Recovered/Not Resolved]
  - Osteopenia [Unknown]
  - Depression [Unknown]
  - Pollakiuria [Unknown]
  - Fracture [Unknown]
  - Open reduction of fracture [Unknown]
  - Temporomandibular joint syndrome [Unknown]
  - Micturition urgency [Unknown]
  - Hepatitis A [Unknown]
  - Nausea [Unknown]
  - Major depression [Unknown]
  - Internal fixation of fracture [Unknown]
  - Open reduction of fracture [Unknown]
  - Fracture nonunion [Unknown]
  - Anxiety [Not Recovered/Not Resolved]
  - Osteoarthritis [Unknown]

NARRATIVE: CASE EVENT DATE: 2007
